FAERS Safety Report 6199991-0 (Version None)
Quarter: 2009Q2

REPORT INFORMATION
  Report Type: 
  Country: None (occurrence: None)
  Receive Date: 20090522
  Receipt Date: 20090514
  Transmission Date: 20091009
  Serious: Yes (Hospitalization)
  Sender: FDA-Public Use
  Company Number: JP-AVENTIS-200911360JP

PATIENT
  Age: 60 Year
  Sex: Male

DRUGS (1)
  1. ALLEGRA [Suspect]
     Route: 048
     Dates: start: 20090401

REACTIONS (3)
  - HEPATIC FUNCTION ABNORMAL [None]
  - JAUNDICE [None]
  - MIXED LIVER INJURY [None]
